FAERS Safety Report 4846717-6 (Version None)
Quarter: 2005Q4

REPORT INFORMATION
  Report Type: 
  Country: None (occurrence: None)
  Receive Date: 20051206
  Receipt Date: 20051005
  Transmission Date: 20060501
  Serious: Yes (Hospitalization)
  Sender: FDA-Public Use
  Company Number: US-MERCK-0510USA04243

PATIENT
  Age: 65 Year
  Sex: Male
  Weight: 89 kg

DRUGS (7)
  1. VIOXX [Suspect]
     Indication: ANALGESIC EFFECT
     Route: 048
     Dates: start: 20030911, end: 20040201
  2. LIPITOR [Concomitant]
     Route: 065
  3. PROTONIX [Concomitant]
     Route: 065
  4. AMARYL [Concomitant]
     Route: 065
  5. LANTUS [Concomitant]
     Route: 065
  6. NOVOLOG [Concomitant]
     Route: 065
  7. LISINOPRIL [Concomitant]
     Route: 065

REACTIONS (4)
  - CONDITION AGGRAVATED [None]
  - MYOCARDIAL INFARCTION [None]
  - OVERDOSE [None]
  - PANCREATIC NEOPLASM [None]
